FAERS Safety Report 22297538 (Version 1)
Quarter: 2023Q2

REPORT INFORMATION
  Report Type: Spontaneous
  Country: JP (occurrence: JP)
  Receive Date: 20230509
  Receipt Date: 20230509
  Transmission Date: 20230722
  Serious: Yes (Hospitalization)
  Sender: FDA-Public Use
  Company Number: JP-TEVA-2023-JP-2885563

PATIENT
  Age: 66 Year
  Sex: Female

DRUGS (4)
  1. LEVOFLOXACIN [Suspect]
     Active Substance: LEVOFLOXACIN
     Indication: COVID-19 pneumonia
     Dosage: 500 MILLIGRAM DAILY; ONCE A DAY
     Route: 065
  2. LOPINAVIR [Suspect]
     Active Substance: LOPINAVIR
     Indication: COVID-19 pneumonia
     Dosage: 800 MILLIGRAM DAILY; ONCE A DAY
     Route: 065
  3. RITONAVIR [Suspect]
     Active Substance: RITONAVIR
     Indication: COVID-19 pneumonia
     Dosage: 200 MILLIGRAM DAILY; ONCE A DAY
     Route: 065
  4. HYDROXYCHLOROQUINE [Suspect]
     Active Substance: HYDROXYCHLOROQUINE
     Indication: COVID-19 pneumonia
     Dosage: 400 MILLIGRAM DAILY; ONCE A DAY
     Route: 065

REACTIONS (5)
  - Diarrhoea [Unknown]
  - Aspartate aminotransferase increased [Recovered/Resolved]
  - Alanine aminotransferase increased [Recovered/Resolved]
  - Drug ineffective [Unknown]
  - Off label use [Unknown]
